FAERS Safety Report 21531525 (Version 1)
Quarter: 2022Q4

REPORT INFORMATION
  Report Type: Spontaneous
  Country: US (occurrence: US)
  Receive Date: 20221031
  Receipt Date: 20221031
  Transmission Date: 20230112
  Serious: Yes (Other)
  Sender: FDA-Public Use
  Company Number: US-PURDUE PHARMA-USA-2022-0297471

PATIENT

DRUGS (1)
  1. BUPRENORPHINE [Suspect]
     Active Substance: BUPRENORPHINE
     Indication: Pain
     Dosage: UNKNOWN
     Route: 060

REACTIONS (9)
  - Pneumonia [Recovered/Resolved]
  - Retinal artery occlusion [Recovered/Resolved]
  - Pain [Recovered/Resolved]
  - Transaminases increased [Recovered/Resolved]
  - Transfusion reaction [Recovered/Resolved]
  - Swelling [Recovered/Resolved]
  - Hypoaesthesia oral [Recovered/Resolved]
  - Headache [Recovered/Resolved]
  - Drug withdrawal syndrome [Recovered/Resolved]
